FAERS Safety Report 6943678-0 (Version None)
Quarter: 2010Q3

REPORT INFORMATION
  Report Type: 
  Country: None (occurrence: None)
  Receive Date: 20100826
  Receipt Date: 20100816
  Transmission Date: 20110219
  Serious: Yes (Hospitalization)
  Sender: FDA-Public Use
  Company Number: B0669115A

PATIENT
  Age: 70 Year
  Sex: Female
  Weight: 55 kg

DRUGS (2)
  1. MINOCYCLINE HCL [Suspect]
     Indication: INFECTION
     Dosage: 100MG PER DAY
     Route: 048
  2. GLIMEPIRIDE [Concomitant]
     Route: 065

REACTIONS (22)
  - ANTINUCLEAR ANTIBODY POSITIVE [None]
  - AREFLEXIA [None]
  - ARTERIAL OCCLUSIVE DISEASE [None]
  - ARTHRALGIA [None]
  - AXONAL NEUROPATHY [None]
  - C-REACTIVE PROTEIN INCREASED [None]
  - CONDUCTION DISORDER [None]
  - FATIGUE [None]
  - GAIT DISTURBANCE [None]
  - HAEMATOCHEZIA [None]
  - HYPOAESTHESIA [None]
  - JOINT SWELLING [None]
  - MELAENA [None]
  - MONONEUROPATHY MULTIPLEX [None]
  - NEUROPATHY PERIPHERAL [None]
  - OEDEMA PERIPHERAL [None]
  - PARAESTHESIA [None]
  - PERONEAL NERVE PALSY [None]
  - POLYARTERITIS NODOSA [None]
  - PYREXIA [None]
  - VASCULITIS [None]
  - WEIGHT DECREASED [None]
